FAERS Safety Report 21269419 (Version 2)
Quarter: 2022Q3

REPORT INFORMATION
  Report Type: Report from Study
  Country: JP (occurrence: JP)
  Receive Date: 20220830
  Receipt Date: 20220908
  Transmission Date: 20221027
  Serious: Yes (Hospitalization, Other)
  Sender: FDA-Public Use
  Company Number: JP-BRISTOL-MYERS SQUIBB COMPANY-2022-097346

PATIENT
  Age: 64 Year
  Sex: Female
  Weight: 53 kg

DRUGS (11)
  1. CISPLATIN [Suspect]
     Active Substance: CISPLATIN
     Indication: Non-small cell lung cancer
     Dosage: MOST RECENT DOSE RECEIVED ON 22-DEC-2021
     Route: 065
     Dates: start: 20211021, end: 20211222
  2. PEMETREXED DISODIUM [Suspect]
     Active Substance: PEMETREXED DISODIUM
     Indication: Non-small cell lung cancer
     Dosage: MOST RECENT DOSE RECEIVED ON 22-DEC-2021
     Route: 065
     Dates: start: 20211021, end: 20211222
  3. SENNOSIDES A AND B [Concomitant]
     Active Substance: SENNOSIDES A AND B
     Indication: Product used for unknown indication
     Route: 048
     Dates: start: 20211027
  4. SODIUM PICOSULFATE [Concomitant]
     Active Substance: SODIUM PICOSULFATE
     Indication: Product used for unknown indication
     Dosage: 1 DF= 15 UNITS NOS
     Route: 048
     Dates: start: 20211027
  5. DEXAMETHASONE [Concomitant]
     Active Substance: DEXAMETHASONE
     Indication: Prophylaxis
     Route: 048
     Dates: start: 20211223
  6. APREPITANT [Concomitant]
     Active Substance: APREPITANT
     Indication: Prophylaxis
     Route: 048
     Dates: start: 20211223
  7. OLANZAPINE [Concomitant]
     Active Substance: OLANZAPINE
     Indication: Prophylaxis
     Route: 048
     Dates: start: 20211021
  8. MAGNESIUM OXIDE [Concomitant]
     Active Substance: MAGNESIUM OXIDE
     Indication: Product used for unknown indication
     Route: 048
     Dates: start: 20211025
  9. DEPRODONE PROPIONATE [Concomitant]
     Active Substance: DEPRODONE PROPIONATE
     Indication: Product used for unknown indication
     Dosage: 1 DF= 0.3 UNIT NOS
     Route: 061
     Dates: start: 20211020
  10. PURIFIED SODIUM HYALURONATE [Concomitant]
     Indication: Product used for unknown indication
     Dosage: 1 DF= 1 UNIT NOS
     Route: 061
     Dates: start: 20211020
  11. Panvitan powder [Concomitant]
     Indication: Prophylaxis
     Dosage: 1 DF= 1 UNIT NOS
     Route: 048
     Dates: start: 20211012

REACTIONS (1)
  - Hyperglycaemia [Recovered/Resolved]

NARRATIVE: CASE EVENT DATE: 20220826
